FAERS Safety Report 4975344-5 (Version None)
Quarter: 2006Q2

REPORT INFORMATION
  Report Type: 
  Country: None (occurrence: None)
  Receive Date: 20060417
  Receipt Date: 20060417
  Transmission Date: 20061013
  Serious: No
  Sender: FDA-Public Use
  Company Number: None

PATIENT
  Age: 68 Year
  Sex: Male
  Weight: 107.9561 kg

DRUGS (1)
  1. ULTRAM ER  100 MG   ORTHO [Suspect]
     Indication: SHOULDER PAIN
     Dosage: 100 MG DAILY PO
     Route: 048
     Dates: start: 20060412, end: 20060414

REACTIONS (1)
  - DRUG INEFFECTIVE [None]
